FAERS Safety Report 24920963 (Version 2)
Quarter: 2025Q1

REPORT INFORMATION
  Report Type: Report from Study
  Country: DE (occurrence: DE)
  Receive Date: 20250204
  Receipt Date: 20250221
  Transmission Date: 20250408
  Serious: Yes (Hospitalization, Other)
  Sender: MERCK SHARP & DOHME LLC
  Company Number: DE-009507513-2412DEU008191

PATIENT
  Age: 71 Year
  Sex: Female

DRUGS (14)
  1. WINREVAIR [Suspect]
     Active Substance: SOTATERCEPT-CSRK
     Indication: Pulmonary arterial hypertension
     Dates: start: 202409
  2. WINREVAIR [Suspect]
     Active Substance: SOTATERCEPT-CSRK
  3. WINREVAIR [Suspect]
     Active Substance: SOTATERCEPT-CSRK
  4. WINREVAIR [Suspect]
     Active Substance: SOTATERCEPT-CSRK
  5. WINREVAIR [Suspect]
     Active Substance: SOTATERCEPT-CSRK
  6. WINREVAIR [Suspect]
     Active Substance: SOTATERCEPT-CSRK
  7. WINREVAIR [Suspect]
     Active Substance: SOTATERCEPT-CSRK
  8. WINREVAIR [Suspect]
     Active Substance: SOTATERCEPT-CSRK
  9. OPSUMIT [Concomitant]
     Active Substance: MACITENTAN
     Dosage: DOSE DESCRIPTION : UNK?CONCENTRATION: 10 MILLIGRAM
  10. NEBIVOLOL [Concomitant]
     Active Substance: NEBIVOLOL
  11. TORSEMIDE [Concomitant]
     Active Substance: TORSEMIDE
  12. ATORVASTATIN [Concomitant]
     Active Substance: ATORVASTATIN
     Dosage: DOSE DESCRIPTION : UNK?CONCENTRATION: 10 MILLIGRAM
  13. SPIRONOLACTONE [Concomitant]
     Active Substance: SPIRONOLACTONE
     Dosage: DOSE DESCRIPTION : UNK?CONCENTRATION: 100 MILLIGRAM
  14. ALLOPURINOL [Concomitant]
     Active Substance: ALLOPURINOL

REACTIONS (9)
  - Influenza [Recovering/Resolving]
  - Fluid retention [Unknown]
  - Headache [Unknown]
  - Fluid retention [Unknown]
  - Weight increased [Unknown]
  - Dyspnoea [Unknown]
  - Headache [Recovered/Resolved]
  - Dizziness [Recovered/Resolved]
  - Epistaxis [Recovered/Resolved]

NARRATIVE: CASE EVENT DATE: 20241216
